FAERS Safety Report 18650510 (Version 1)
Quarter: 2020Q4

REPORT INFORMATION
  Report Type: Spontaneous
  Country: US (occurrence: US)
  Receive Date: 20201222
  Receipt Date: 20201222
  Transmission Date: 20210114
  Serious: Yes (Other)
  Sender: FDA-Public Use
  Company Number: US-ELI_LILLY_AND_COMPANY-US202012007816

PATIENT

DRUGS (2)
  1. FORTEO [Suspect]
     Active Substance: TERIPARATIDE
     Indication: PRODUCT USED FOR UNKNOWN INDICATION
     Dosage: UNK, UNKNOWN
     Route: 065
  2. XELJANZ XR [Interacting]
     Active Substance: TOFACITINIB CITRATE
     Indication: RHEUMATOID ARTHRITIS
     Dosage: 11 MG, DAILY
     Route: 048
     Dates: start: 20191118

REACTIONS (10)
  - Contusion [Unknown]
  - Dizziness [Unknown]
  - Fall [Unknown]
  - Loss of consciousness [Unknown]
  - Discouragement [Unknown]
  - Drug interaction [Unknown]
  - Blood pressure increased [Recovered/Resolved]
  - Headache [Unknown]
  - Depression [Unknown]
  - Pain [Unknown]
